FAERS Safety Report 23053417 (Version 1)
Quarter: 2023Q4

REPORT INFORMATION
  Report Type: Spontaneous
  Country: CA (occurrence: CA)
  Receive Date: 20231011
  Receipt Date: 20231011
  Transmission Date: 20240109
  Serious: Yes (Hospitalization, Other)
  Sender: FDA-Public Use
  Company Number: CA-BAXTER-2023BAX032893

PATIENT
  Age: 84 Year
  Sex: Female

DRUGS (3)
  1. DOXORUBICIN [Suspect]
     Active Substance: DOXORUBICIN
     Dosage: 2.0 MILLIGRAM/MILLILITER, INJECTION 10MG/5ML, 50MG/25ML AND 200MG/100ML VIALS, DOSAGE FORM: SOLUTION
     Route: 065
  2. CYCLOPHOSPHAMIDE [Suspect]
     Active Substance: CYCLOPHOSPHAMIDE
     Dosage: 2.0 GRAM, DOSGAE FORM: POWDER FOR SOLUTION INTRAVENOUS
     Route: 065
  3. RITUXIMAB [Suspect]
     Active Substance: RITUXIMAB
     Dosage: UNK, SINGLE-USE VIAL, DOSAGE FORM: SOLUTION SUBCUTANEOUS
     Route: 065

REACTIONS (1)
  - Febrile neutropenia [Unknown]
